FAERS Safety Report 4794319-2 (Version None)
Quarter: 2005Q4

REPORT INFORMATION
  Report Type: 
  Country: None (occurrence: None)
  Receive Date: 20051007
  Receipt Date: 20051007
  Transmission Date: 20060501
  Serious: No
  Sender: FDA-Public Use
  Company Number: None

PATIENT
  Age: 54 Year
  Sex: Female
  Weight: 80.2867 kg

DRUGS (6)
  1. VENOFER [Suspect]
     Indication: IRON DEFICIENCY ANAEMIA
     Dosage: 300 MG QWEEK IV
     Route: 042
     Dates: start: 20051006, end: 20051006
  2. ARANESP [Concomitant]
  3. COMPAZINE [Concomitant]
  4. THYROID TAB [Concomitant]
  5. OXYCONTIN [Concomitant]
  6. TRAMADOL [Concomitant]

REACTIONS (3)
  - INFUSION RELATED REACTION [None]
  - PARAESTHESIA [None]
  - PRURITUS GENERALISED [None]
